FAERS Safety Report 11858644 (Version 3)
Quarter: 2016Q1

REPORT INFORMATION
  Report Type: Report from Study
  Country: US (occurrence: US)
  Receive Date: 20151222
  Receipt Date: 20160203
  Transmission Date: 20160526
  Serious: Yes (Other)
  Sender: FDA-Public Use
  Company Number: US-AMGEN-USASL2015135052

PATIENT
  Age: 55 Year
  Sex: Female

DRUGS (2)
  1. ENBREL [Suspect]
     Active Substance: ETANERCEPT
     Indication: RHEUMATOID ARTHRITIS
     Dosage: 50 MG, UNK
     Route: 065
     Dates: start: 1994
  2. ENBREL [Suspect]
     Active Substance: ETANERCEPT
     Dosage: UNK
     Route: 065
     Dates: start: 20141226

REACTIONS (8)
  - Adverse event [Not Recovered/Not Resolved]
  - Incision site infection [Unknown]
  - Cervix carcinoma [Unknown]
  - Impaired healing [Unknown]
  - Hysterectomy [Unknown]
  - Systemic lupus erythematosus [Unknown]
  - Amnesia [Unknown]
  - Death of relative [Unknown]

NARRATIVE: CASE EVENT DATE: 20151221
